FAERS Safety Report 9570937 (Version 1)
Quarter: 2013Q3

REPORT INFORMATION
  Report Type: Spontaneous
  Country: US (occurrence: None)
  Receive Date: 20130927
  Receipt Date: 20130927
  Transmission Date: 20140515
  Serious: Yes (Other)
  Sender: FDA-Public Use
  Company Number: AUR-APL-2013-07998

PATIENT
  Age: 4 Year
  Sex: Female
  Weight: 55.78 kg

DRUGS (16)
  1. SIMVASTATIN [Suspect]
  2. SIMVASTATIN [Suspect]
  3. LYRICA (PREGABALIN) [Suspect]
     Dates: start: 20130912
  4. LYRICA (PREGABALIN) [Suspect]
     Dates: start: 20130912
  5. LYRICA (PREGABALIN) [Suspect]
     Dates: start: 20130912
  6. IBUPROFEN (IBUPROFEN) [Concomitant]
  7. BUDESONIDE [Suspect]
  8. OMEPRAZOLE (OMEPRAZOLE) [Suspect]
  9. OMEPRAZOLE (OMEPRAZOLE) [Suspect]
  10. INDERAL (PROPRANOLOL HYDROCHLORIDE) [Suspect]
     Dosage: 40 MG (20 MG,2 IN 1 D), UNKNOWN
  11. ALBUTEROL (SALBUTAMOL) [Suspect]
  12. TORADOL (KETOROLAC TROMETHAMINE) [Suspect]
  13. VICODIN (VICODIN) [Concomitant]
  14. VITAMIN D3 (COLECALCIFEROL) [Suspect]
  15. PROBIOTICS [Suspect]
  16. PROBIOTICS [Suspect]

REACTIONS (5)
  - Dyspnoea [None]
  - Drug interaction [None]
  - Off label use [None]
  - Drug ineffective [None]
  - Unevaluable event [None]
